FAERS Safety Report 6521834-3 (Version None)
Quarter: 2009Q4

REPORT INFORMATION
  Report Type: 
  Country: None (occurrence: None)
  Receive Date: 20091229
  Receipt Date: 20091229
  Transmission Date: 20100525
  Serious: No
  Sender: FDA-Public Use
  Company Number: None

PATIENT
  Age: 56 Year
  Sex: Female
  Weight: 63.5036 kg

DRUGS (3)
  1. LOVASTATIN 40MG TAB (SANDOZ) [Suspect]
     Dosage: TWICE DAILY
  2. PRAVASTATIN 20MG (TEVA) [Suspect]
     Dosage: ONCE DAILY
  3. LOVASTATIN BY LUPIN [Suspect]
     Dosage: 40MG TWICE DAILY

REACTIONS (2)
  - FLATULENCE [None]
  - PRODUCT QUALITY ISSUE [None]
